FAERS Safety Report 20942234 (Version 1)
Quarter: 2022Q2

REPORT INFORMATION
  Report Type: Spontaneous
  Country: JP (occurrence: JP)
  Receive Date: 20220610
  Receipt Date: 20220610
  Transmission Date: 20220721
  Serious: Yes (Death)
  Sender: FDA-Public Use
  Company Number: JP-STRIDES ARCOLAB LIMITED-2022SP006882

PATIENT
  Sex: Female

DRUGS (3)
  1. DEXAMETHASONE [Suspect]
     Active Substance: DEXAMETHASONE
     Indication: Plasma cell myeloma refractory
     Dosage: UNK, ON DAYS 1, 8, 15 AND 22 OF A 28 DAY CYCLE
     Route: 065
  2. IXAZOMIB [Suspect]
     Active Substance: IXAZOMIB
     Indication: Plasma cell myeloma refractory
     Dosage: UNK, ON DAYS 1, 8 AND 15 OF A 28 DAY CYCLE
     Route: 065
  3. LENALIDOMIDE [Suspect]
     Active Substance: LENALIDOMIDE
     Indication: Plasma cell myeloma refractory
     Dosage: UNK, ON DAYS 1 THROUGH 21 OF A 28 DAY CYCLE
     Route: 065

REACTIONS (2)
  - Pneumonia staphylococcal [Fatal]
  - Staphylococcal sepsis [Fatal]
